FAERS Safety Report 26026698 (Version 1)
Quarter: 2025Q4

REPORT INFORMATION
  Report Type: Spontaneous
  Country: US (occurrence: US)
  Receive Date: 20251111
  Receipt Date: 20251111
  Transmission Date: 20260118
  Serious: Yes (Hospitalization)
  Sender: ROCHE
  Company Number: US-ROCHE-10000429520

PATIENT
  Sex: Female

DRUGS (7)
  1. XOLAIR [Suspect]
     Active Substance: OMALIZUMAB
     Indication: Asthma
     Route: 058
     Dates: start: 20190404
  2. AMILORIDE [Concomitant]
     Active Substance: AMILORIDE
  3. OSCAL [Concomitant]
     Active Substance: CALCIUM CARBONATE
     Dosage: 500/ TAB 200 D-3
  4. THIAMINE HYDROCHLORIDE [Concomitant]
     Active Substance: THIAMINE HYDROCHLORIDE
  5. VITAMIN C [Concomitant]
     Active Substance: ASCORBIC ACID
  6. VITAMIN D-1000 [Concomitant]
  7. ZINC SULFATE [Concomitant]
     Active Substance: ZINC SULFATE

REACTIONS (1)
  - Groin pain [Unknown]
